FAERS Safety Report 4312382-X (Version None)
Quarter: 2004Q1

REPORT INFORMATION
  Report Type: 
  Country: None (occurrence: None)
  Receive Date: 20040303
  Receipt Date: 20040301
  Transmission Date: 20041129
  Serious: Yes (Other)
  Sender: FDA-Public Use
  Company Number: 200410810BCC

PATIENT
  Age: 26 Year
  Sex: Female
  Weight: 67.586 kg

DRUGS (2)
  1. ORIGINAL ALKA-SELTZER TABLETS [Suspect]
     Indication: ABDOMINAL PAIN UPPER
     Dosage: ORAL
     Route: 048
  2. ORIGINAL ALKA-SELTZER TABLETS [Suspect]
     Indication: NAUSEA
     Dosage: ORAL
     Route: 048

REACTIONS (6)
  - ABORTION SPONTANEOUS [None]
  - CARDIAC DISORDER [None]
  - COMPLICATIONS OF MATERNAL EXPOSURE TO THERAPEUTIC DRUGS [None]
  - HAEMORRHAGE [None]
  - MATERNAL DRUGS AFFECTING FOETUS [None]
  - VAGINAL HAEMORRHAGE [None]
